FAERS Safety Report 8041236-0 (Version None)
Quarter: 2012Q1

REPORT INFORMATION
  Report Type: 
  Country: None (occurrence: None)
  Receive Date: 20120109
  Receipt Date: 20111006
  Transmission Date: 20120608
  Serious: No
  Sender: FDA-Public Use
  Company Number: 2011-16141

PATIENT
  Age: 68 Year
  Sex: Male

DRUGS (2)
  1. CASODEX [Suspect]
     Indication: PROSTATE CANCER
     Dates: start: 20110929
  2. TRELSTAR [Suspect]
     Indication: PROSTATE CANCER
     Dosage: 22.5 MG, INTRAMUSCULAR
     Route: 030
     Dates: start: 20110929

REACTIONS (4)
  - PRURITUS [None]
  - URTICARIA [None]
  - BURNING SENSATION [None]
  - SWELLING [None]
